FAERS Safety Report 19860397 (Version 1)
Quarter: 2021Q3

REPORT INFORMATION
  Report Type: Report from Study
  Country: DE (occurrence: DE)
  Receive Date: 20210920
  Receipt Date: 20210920
  Transmission Date: 20211014
  Serious: Yes (Hospitalization, Disabling)
  Sender: FDA-Public Use
  Company Number: DE-NXDC-GLE-0022-2021

PATIENT
  Age: 56 Year
  Sex: Female
  Weight: 69 kg

DRUGS (6)
  1. IPDT [INTERSTITIAL PHOTODYNAMIC THERAPY] [Suspect]
     Active Substance: DEVICE
     Indication: GLIOBLASTOMA
  2. MEDICAL DEVICE ML7710I [Suspect]
     Active Substance: DEVICE
     Indication: GLIOBLASTOMA
  3. STEREOTACTIC TUMOR BIOPSY [Suspect]
     Active Substance: DEVICE
     Indication: GLIOBLASTOMA
  4. MEDICAL DEVICE D?103?XX [Suspect]
     Active Substance: DEVICE
     Indication: GLIOBLASTOMA
  5. INSERTION OF LIGHT DIFFUSERS [Suspect]
     Active Substance: DEVICE
     Indication: GLIOBLASTOMA
  6. PD L 506 [Suspect]
     Active Substance: AMINOLEVULINIC ACID HYDROCHLORIDE
     Indication: GLIOBLASTOMA
     Route: 048

REACTIONS (1)
  - Brain oedema [Recovering/Resolving]

NARRATIVE: CASE EVENT DATE: 20210910
